FAERS Safety Report 8463015-2 (Version None)
Quarter: 2012Q2

REPORT INFORMATION
  Report Type: 
  Country: None (occurrence: None)
  Receive Date: 20120625
  Receipt Date: 20120620
  Transmission Date: 20120825
  Serious: Yes (Death)
  Sender: FDA-Public Use
  Company Number: DE-GLAXOSMITHKLINE-B0810003A

PATIENT
  Sex: Female
  Weight: 47 kg

DRUGS (9)
  1. PACLITAXEL [Suspect]
     Indication: BREAST CANCER
     Dosage: 125MG WEEKLY
     Route: 042
     Dates: start: 20120328, end: 20120619
  2. DEXAMETHASONE SODIUM PHOSPHATE [Concomitant]
     Dosage: 4MG PER DAY
     Dates: start: 20120328, end: 20120612
  3. DIMETINDEN [Concomitant]
     Dosage: 4MG PER DAY
     Dates: start: 20120328, end: 20120612
  4. METOPROLOL TARTRATE [Concomitant]
     Dates: end: 20120619
  5. AMLODIPINE [Concomitant]
     Dates: end: 20120619
  6. LAPATINIB [Suspect]
     Indication: BREAST CANCER
     Dosage: 500MG PER DAY
     Route: 048
     Dates: start: 20120328, end: 20120528
  7. TRASTUZUMAB [Suspect]
     Indication: BREAST CANCER
     Dosage: 300MG EVERY 3 WEEKS
     Route: 042
     Dates: start: 20120327, end: 20120619
  8. DOXORUBICIN HCL [Suspect]
     Indication: BREAST CANCER
     Dosage: 31MG WEEKLY
     Route: 042
     Dates: start: 20120328, end: 20120619
  9. RANITIDINE HCL [Concomitant]
     Dosage: 5ML PER DAY
     Dates: start: 20120328, end: 20120612

REACTIONS (1)
  - CARDIAC ARREST [None]
